FAERS Safety Report 5152150-2 (Version None)
Quarter: 2006Q4

REPORT INFORMATION
  Report Type: 
  Country: None (occurrence: None)
  Receive Date: 20061116
  Receipt Date: 20060915
  Transmission Date: 20070319
  Serious: Yes (Hospitalization, Other)
  Sender: FDA-Public Use
  Company Number: SG-BRISTOL-MYERS SQUIBB COMPANY-13514559

PATIENT
  Age: 55 Year
  Sex: Male

DRUGS (3)
  1. ENTECAVIR [Suspect]
     Route: 048
     Dates: start: 20050804
  2. TACROLIMUS [Concomitant]
  3. ADEFOVIR DIPIVOXIL KIT [Concomitant]

REACTIONS (8)
  - ACTIVATED PARTIAL THROMBOPLASTIN TIME PROLONGED [None]
  - ATELECTASIS [None]
  - CENTRAL NERVOUS SYSTEM LYMPHOMA [None]
  - METASTASIS [None]
  - MULTIPLE MYELOMA [None]
  - MYCOSIS FUNGOIDES RECURRENT [None]
  - RASH [None]
  - SPLENOMEGALY [None]
